FAERS Safety Report 13085503 (Version 1)
Quarter: 2017Q1

REPORT INFORMATION
  Report Type: Spontaneous
  Country: US (occurrence: US)
  Receive Date: 20170103
  Receipt Date: 20170103
  Transmission Date: 20170428
  Serious: No
  Sender: FDA-Public Use
  Company Number: None

PATIENT
  Age: 63 Year
  Sex: Female
  Weight: 50.4 kg

DRUGS (6)
  1. TYLENOL [Concomitant]
     Active Substance: ACETAMINOPHEN
  2. SYNTHROID [Concomitant]
     Active Substance: LEVOTHYROXINE SODIUM
  3. PYCNOGENOL [Concomitant]
     Active Substance: DIETARY SUPPLEMENT
  4. RESTASIS [Suspect]
     Active Substance: CYCLOSPORINE
     Indication: DRY EYE
     Route: 047
  5. PROBIOTIC [Concomitant]
     Active Substance: PROBIOTICS NOS
  6. CRANBERRY CAPSULES [Concomitant]

REACTIONS (2)
  - Headache [None]
  - Rash [None]
